FAERS Safety Report 4782722-6 (Version None)
Quarter: 2005Q3

REPORT INFORMATION
  Report Type: 
  Country: None (occurrence: None)
  Receive Date: 20050929
  Receipt Date: 20050824
  Transmission Date: 20060218
  Serious: No
  Sender: FDA-Public Use
  Company Number: 415667

PATIENT
  Sex: Female

DRUGS (2)
  1. COREG [Suspect]
     Dosage: 6.25MG TWICE PER DAY
     Route: 048
     Dates: start: 20040901
  2. LEXAPRO [Concomitant]

REACTIONS (1)
  - WEIGHT INCREASED [None]
